FAERS Safety Report 6312905-5 (Version None)
Quarter: 2009Q3

REPORT INFORMATION
  Report Type: 
  Country: None (occurrence: None)
  Receive Date: 20090818
  Receipt Date: 20090209
  Transmission Date: 20100115
  Serious: No
  Sender: FDA-Public Use
  Company Number: US-KINGPHARMUSA00001-K200900125

PATIENT
  Age: 16 Year
  Sex: Female

DRUGS (1)
  1. PENICILLIN G PROCAINE [Suspect]
     Indication: STREPTOCOCCAL INFECTION
     Dosage: UNK
     Route: 042
     Dates: start: 19540101

REACTIONS (4)
  - OEDEMA PERIPHERAL [None]
  - SECRETION DISCHARGE [None]
  - SKIN EXFOLIATION [None]
  - SWELLING [None]
